FAERS Safety Report 23661822 (Version 3)
Quarter: 2024Q2

REPORT INFORMATION
  Report Type: Spontaneous
  Country: CA (occurrence: None)
  Receive Date: 20240322
  Receipt Date: 20240402
  Transmission Date: 20240716
  Serious: Yes (Other)
  Sender: FDA-Public Use
  Company Number: CA-PFIZER INC-202400068533

PATIENT
  Age: 6 Decade
  Sex: Male
  Weight: 98.866 kg

DRUGS (1)
  1. METHOTREXATE [Suspect]
     Active Substance: METHOTREXATE
     Indication: Psoriatic arthropathy
     Dates: start: 2012, end: 2014

REACTIONS (2)
  - Hepatotoxicity [Not Recovered/Not Resolved]
  - Drug intolerance [Unknown]
